FAERS Safety Report 21011647 (Version 3)
Quarter: 2022Q4

REPORT INFORMATION
  Report Type: Report from Study
  Country: GB (occurrence: GB)
  Receive Date: 20220627
  Receipt Date: 20221101
  Transmission Date: 20230113
  Serious: Yes (Death, Congenital Anomaly, Other)
  Sender: FDA-Public Use
  Company Number: GB-GlaxoSmithKline-GB2019GSK155832

PATIENT

DRUGS (33)
  1. ABACAVIR SULFATE\LAMIVUDINE [Suspect]
     Active Substance: ABACAVIR SULFATE\LAMIVUDINE
     Indication: HIV infection
     Dosage: 1 DF, QD (TABLET) 600 MG/ 300 MG
     Route: 064
  2. ABACAVIR SULFATE\LAMIVUDINE [Suspect]
     Active Substance: ABACAVIR SULFATE\LAMIVUDINE
     Dosage: 400 DOSAGE FORM, QD (400 DOSAGE FORM, ONCE A DAY)
     Route: 064
  3. CHOLECALCIFEROL [Suspect]
     Active Substance: CHOLECALCIFEROL
     Indication: Product used for unknown indication
     Dosage: UNK
     Route: 064
  4. CHOLECALCIFEROL [Suspect]
     Active Substance: CHOLECALCIFEROL
     Dosage: UNK
     Route: 064
  5. CHOLECALCIFEROL [Suspect]
     Active Substance: CHOLECALCIFEROL
     Dosage: UNK
     Route: 064
  6. ERGOCALCIFEROL [Suspect]
     Active Substance: ERGOCALCIFEROL
     Indication: Product used for unknown indication
     Dosage: UNK
     Route: 064
  7. ERGOCALCIFEROL [Suspect]
     Active Substance: ERGOCALCIFEROL
     Dosage: UNK
     Route: 064
  8. ERGOCALCIFEROL [Suspect]
     Active Substance: ERGOCALCIFEROL
     Dosage: UNK
     Route: 064
  9. VITAMIN D [Suspect]
     Active Substance: VITAMIN D NOS
     Indication: Product used for unknown indication
     Dosage: UNK
     Route: 064
  10. VITAMIN D [Suspect]
     Active Substance: VITAMIN D NOS
     Dosage: UNK
     Route: 064
  11. LAMIVUDINE AND ZIDOVUDINE [Suspect]
     Active Substance: LAMIVUDINE\ZIDOVUDINE
     Indication: HIV infection
     Dosage: 900 MG, QD, 600MG/ 300 MG)
     Route: 064
  12. ABACAVIR SULFATE [Suspect]
     Active Substance: ABACAVIR SULFATE
     Indication: HIV infection
     Dosage: 1 DF (400), QD
     Route: 064
  13. ABACAVIR SULFATE [Suspect]
     Active Substance: ABACAVIR SULFATE
     Indication: Foetal exposure during pregnancy
     Dosage: 1 DF (400), QD
     Route: 064
  14. ABACAVIR SULFATE [Suspect]
     Active Substance: ABACAVIR SULFATE
     Dosage: 1 DF (400), QD (600 MG/ 300 MG)
     Route: 064
  15. LAMIVUDINE [Suspect]
     Active Substance: LAMIVUDINE
     Indication: HIV infection
     Dosage: 1 DF, QD
     Route: 064
  16. LAMIVUDINE [Suspect]
     Active Substance: LAMIVUDINE
     Dosage: 1 DF, QD, (DOSE: 1 CAPSULE; STRENGTH: 600MG/300MG)
     Route: 064
  17. LAMIVUDINE [Suspect]
     Active Substance: LAMIVUDINE
     Dosage: 1 DF, QD, (DOSE: 1 CAPSULE; STRENGTH: 600MG/300MG)
     Route: 064
  18. ASPIRIN [Suspect]
     Active Substance: ASPIRIN
     Indication: Hypertension
     Dosage: UNK
     Route: 064
  19. ASPIRIN [Suspect]
     Active Substance: ASPIRIN
     Indication: Foetal exposure during pregnancy
     Dosage: 1 DF, IN FIRST TRIMESTER
     Route: 064
  20. ASPIRIN [Suspect]
     Active Substance: ASPIRIN
     Dosage: UNK
     Route: 064
  21. LAMIVUDINE AND ZIDOVUDINE [Suspect]
     Active Substance: LAMIVUDINE\ZIDOVUDINE
     Indication: HIV infection
     Dosage: 900 MG, QD,(600MG/ 300 MG)
     Route: 064
  22. VIRAMUNE [Suspect]
     Active Substance: NEVIRAPINE
     Indication: HIV infection
     Dosage: 400 MG, QD
     Route: 064
  23. NIFEDIPINE [Suspect]
     Active Substance: NIFEDIPINE
     Indication: Hypertension
     Dosage: UNK
     Route: 064
  24. NIFEDIPINE [Suspect]
     Active Substance: NIFEDIPINE
     Dosage: UNK
     Route: 064
  25. NIFEDIPINE [Suspect]
     Active Substance: NIFEDIPINE
     Dosage: UNK
     Route: 064
  26. LABETALOL [Suspect]
     Active Substance: LABETALOL\LABETALOL HYDROCHLORIDE
     Indication: Hypertension
     Dosage: 1 DF
     Route: 064
  27. LABETALOL [Suspect]
     Active Substance: LABETALOL\LABETALOL HYDROCHLORIDE
     Dosage: 1 DF
     Route: 064
  28. LABETALOL [Suspect]
     Active Substance: LABETALOL\LABETALOL HYDROCHLORIDE
     Dosage: UNK
     Route: 064
  29. LAMIVUDINE [Suspect]
     Active Substance: LAMIVUDINE
     Indication: HIV infection
     Dosage: 1 DF, QD
     Route: 064
  30. NEVIRAPINE [Suspect]
     Active Substance: NEVIRAPINE
     Indication: HIV infection
     Dosage: 400 MG, QD
     Route: 064
  31. NEVIRAPINE [Suspect]
     Active Substance: NEVIRAPINE
     Dosage: 400 MG, QD
     Route: 064
  32. NEVIRAPINE [Suspect]
     Active Substance: NEVIRAPINE
     Dosage: 400 MG, QD
     Route: 064
  33. VITAMIN D2 [Concomitant]
     Active Substance: ERGOCALCIFEROL
     Indication: Product used for unknown indication
     Dosage: UNK
     Route: 064

REACTIONS (13)
  - Polydactyly [Fatal]
  - Atrioventricular septal defect [Fatal]
  - Pulmonary hypertension [Fatal]
  - Trisomy 21 [Fatal]
  - Gene mutation [Fatal]
  - Speech disorder developmental [Fatal]
  - Ataxia [Fatal]
  - Macrocephaly [Fatal]
  - Congenital central nervous system anomaly [Fatal]
  - Dandy-Walker syndrome [Fatal]
  - Attention deficit hyperactivity disorder [Fatal]
  - Neurodevelopmental disorder [Fatal]
  - Foetal exposure during pregnancy [Fatal]

NARRATIVE: CASE EVENT DATE: 20190816
